FAERS Safety Report 16682342 (Version 1)
Quarter: 2019Q3

REPORT INFORMATION
  Report Type: Spontaneous
  Country: CA (occurrence: CA)
  Receive Date: 20190808
  Receipt Date: 20190808
  Transmission Date: 20191004
  Serious: Yes (Death)
  Sender: FDA-Public Use
  Company Number: CA-TEVA-2019-CA-1084716

PATIENT
  Age: 8 Year
  Sex: Male

DRUGS (2)
  1. TRYPTOPHAN [Suspect]
     Active Substance: TRYPTOPHAN
     Indication: PRODUCT USED FOR UNKNOWN INDICATION
     Route: 065
  2. BACLOFEN. [Suspect]
     Active Substance: BACLOFEN
     Indication: MUSCLE RELAXANT THERAPY
     Route: 065

REACTIONS (3)
  - Overdose [Fatal]
  - Death [Fatal]
  - Wrong dose [Fatal]
